FAERS Safety Report 8312593-2 (Version None)
Quarter: 2012Q2

REPORT INFORMATION
  Report Type: 
  Country: None (occurrence: None)
  Receive Date: 20120424
  Receipt Date: 20120416
  Transmission Date: 20120825
  Serious: Yes (Other)
  Sender: FDA-Public Use
  Company Number: 2012SP020139

PATIENT
  Sex: Male

DRUGS (2)
  1. PEG-INTRON [Suspect]
     Indication: HEPATITIS C
     Dates: start: 20060118, end: 20061218
  2. RIBAVIRIN [Suspect]
     Indication: HEPATITIS C
     Dates: start: 20060118, end: 20061218

REACTIONS (1)
  - HEPATIC CIRRHOSIS [None]
